FAERS Safety Report 15826551 (Version 1)
Quarter: 2018Q4

REPORT INFORMATION
  Report Type: Spontaneous
  Country: US (occurrence: US)
  Receive Date: 20181218
  Receipt Date: 20181218
  Transmission Date: 20190205
  Serious: Yes (Hospitalization)
  Sender: FDA-Public Use
  Company Number: None

PATIENT
  Age: 5 Year
  Sex: Male

DRUGS (7)
  1. CARNITOR [Concomitant]
     Active Substance: LEVOCARNITINE
  2. TOPAMAX [Concomitant]
     Active Substance: TOPIRAMATE
  3. ALBUTEROL. [Concomitant]
     Active Substance: ALBUTEROL
  4. VIGABATRIN 500 MG PWD [Suspect]
     Active Substance: VIGABATRIN
     Route: 048
  5. FLONASE [Concomitant]
     Active Substance: FLUTICASONE PROPIONATE
  6. VIGABATRIN 500 MG PWD [Suspect]
     Active Substance: VIGABATRIN
     Indication: LENNOX-GASTAUT SYNDROME
     Dosage: ?          OTHER FREQUENCY:TWICE A DAY AM;?
     Route: 048
     Dates: start: 20180517
  7. DEPAKOTE ER [Concomitant]
     Active Substance: DIVALPROEX SODIUM

REACTIONS (2)
  - Respiratory distress [None]
  - Vomiting [None]

NARRATIVE: CASE EVENT DATE: 20181129
